FAERS Safety Report 14314707 (Version 1)
Quarter: 2017Q4

REPORT INFORMATION
  Report Type: Spontaneous
  Country: GB (occurrence: NL)
  Receive Date: 20171221
  Receipt Date: 20171221
  Transmission Date: 20180321
  Serious: Yes (Other)
  Sender: FDA-Public Use
  Company Number: NL-FRESENIUS KABI-FK201711011

PATIENT
  Age: 61 Year
  Sex: Female

DRUGS (1)
  1. ZOLEDRONIC ACID (MANUFACTURER UNKNOWN) [Suspect]
     Active Substance: ZOLEDRONIC ACID
     Indication: BREAST CANCER
     Route: 042

REACTIONS (9)
  - Disease recurrence [Unknown]
  - Fatigue [Recovered/Resolved]
  - Gait disturbance [Unknown]
  - Off label use [Unknown]
  - Chills [Recovered/Resolved]
  - Myalgia [Recovered/Resolved]
  - Acute phase reaction [Recovered/Resolved]
  - Paraesthesia [Unknown]
  - Headache [Recovered/Resolved]
